FAERS Safety Report 17689642 (Version 1)
Quarter: 2020Q2

REPORT INFORMATION
  Report Type: Spontaneous
  Country: US (occurrence: US)
  Receive Date: 20200420
  Receipt Date: 20200420
  Transmission Date: 20200714
  Serious: No
  Sender: FDA-Public Use
  Company Number: None

PATIENT
  Age: 49 Year
  Sex: Female

DRUGS (1)
  1. TREXIMET GENERIC [Suspect]
     Active Substance: NAPROXEN SODIUM\SUMATRIPTAN SUCCINATE
     Dosage: ?          OTHER DOSE:TREXIMET;?
     Route: 048

REACTIONS (2)
  - Drug ineffective [None]
  - Drug intolerance [None]

NARRATIVE: CASE EVENT DATE: 20200320
